FAERS Safety Report 8599752 (Version 4)
Quarter: 2013Q1

REPORT INFORMATION
  Report Type: Report from Study
  Country: US (occurrence: US)
  Receive Date: 20120605
  Receipt Date: 20130109
  Transmission Date: 20140127
  Serious: Yes (Death)
  Sender: FDA-Public Use
  Company Number: US-ABBOTT-12P-163-0941914-00

PATIENT
  Age: 82 Year
  Sex: Male

DRUGS (4)
  1. LEUPROLIDE [Suspect]
     Indication: PROSTATE CANCER
     Dates: start: 20090626
  2. LEUPROLIDE [Suspect]
     Indication: PROSTATIC SPECIFIC ANTIGEN INCREASED
  3. LEUPROLIDE [Suspect]
     Indication: RETRO-PUBIC PROSTATECTOMY
  4. LEUPROLIDE [Suspect]
     Indication: ILL-DEFINED DISORDER

REACTIONS (1)
  - Death [Fatal]
